FAERS Safety Report 21156261 (Version 1)
Quarter: 2022Q3

REPORT INFORMATION
  Report Type: Spontaneous
  Country: US (occurrence: US)
  Receive Date: 20220801
  Receipt Date: 20220801
  Transmission Date: 20221026
  Serious: No
  Sender: FDA-Public Use
  Company Number: US-PADAGIS-2022PAD00150

PATIENT

DRUGS (2)
  1. ESTRADIOL [Suspect]
     Active Substance: ESTRADIOL
     Indication: Product used for unknown indication
     Dosage: 1 G DAILY
     Route: 067
     Dates: start: 20220502
  2. ESTRADIOL [Suspect]
     Active Substance: ESTRADIOL
     Dosage: 1 G THREE TIMES PER WEEK
     Route: 067
     Dates: start: 20220502

REACTIONS (1)
  - Incorrect dose administered [Unknown]

NARRATIVE: CASE EVENT DATE: 20220603
